FAERS Safety Report 17284825 (Version 2)
Quarter: 2020Q1

REPORT INFORMATION
  Report Type: Spontaneous
  Country: US (occurrence: US)
  Receive Date: 20200117
  Receipt Date: 20200219
  Transmission Date: 20200409
  Serious: No
  Sender: FDA-Public Use
  Company Number: US-ALKERMES INC.-ALK-2020-000125

PATIENT
  Age: 23 Year
  Sex: Male

DRUGS (2)
  1. ARISTADA [Suspect]
     Active Substance: ARIPIPRAZOLE LAUROXIL
     Dosage: UNK
     Route: 030
     Dates: start: 2019, end: 2019
  2. ARISTADA [Suspect]
     Active Substance: ARIPIPRAZOLE LAUROXIL
     Indication: PRODUCT USED FOR UNKNOWN INDICATION
     Dosage: UNK
     Route: 030
     Dates: start: 20200107

REACTIONS (5)
  - Alcoholic hangover [Not Recovered/Not Resolved]
  - Alcohol use [Recovered/Resolved]
  - Dehydration [Not Recovered/Not Resolved]
  - Alcohol poisoning [Recovered/Resolved]
  - Hypohidrosis [Not Recovered/Not Resolved]

NARRATIVE: CASE EVENT DATE: 2019
